FAERS Safety Report 7266940-3 (Version None)
Quarter: 2011Q1

REPORT INFORMATION
  Report Type: 
  Country: None (occurrence: None)
  Receive Date: 20110201
  Receipt Date: 20110125
  Transmission Date: 20110831
  Serious: Yes (Other)
  Sender: FDA-Public Use
  Company Number: ES-JNJFOC-20100505052

PATIENT
  Age: 17 Year
  Sex: Male

DRUGS (3)
  1. RISPERDAL CONSTA [Suspect]
     Indication: SCHIZOPHRENIA
     Route: 030
  2. INVEGA [Suspect]
     Indication: ILL-DEFINED DISORDER
     Route: 048
  3. AKINETON [Concomitant]
     Indication: DYSTONIA

REACTIONS (1)
  - DEAFNESS [None]
